FAERS Safety Report 8951119 (Version 3)
Quarter: 2013Q1

REPORT INFORMATION
  Report Type: Spontaneous
  Country: US (occurrence: None)
  Receive Date: 20121130
  Receipt Date: 20130328
  Transmission Date: 20140127
  Serious: Yes (Death, Life-Threatening, Hospitalization)
  Sender: FDA-Public Use
  Company Number: AMAG201203143

PATIENT
  Age: 64 Year
  Sex: Male
  Weight: 85 kg

DRUGS (27)
  1. FERAHEME [Suspect]
     Indication: ANAEMIA
     Dosage: 7 ML, SINGLE (210 MG)
     Dates: start: 20121120, end: 20121120
  2. FERAHEME [Suspect]
     Indication: IRON DEFICIENCY ANAEMIA
     Dosage: 7 ML, SINGLE (210 MG)
     Dates: start: 20121120, end: 20121120
  3. DEXAMETHASONE (DEXAMETHASONE SODIUM PHOSPHATE) [Concomitant]
  4. ADVAIR HFA (FLUTICASONE PROPIONATE, SALMETEROL XINAFOATE) [Concomitant]
  5. BISOPROLOL FUMARATE (BISOPROLOL FUMARATE) [Concomitant]
  6. DEPAKOTE (VALPROATE SEMISODIUM) [Concomitant]
  7. DIGOXIN (DIGOXIN) [Concomitant]
  8. DILTIAZEM (DILTIAZEM HYDROCHLORIDE) [Concomitant]
  9. FERROUS SULFATE (FERROUS SULFATE) [Concomitant]
  10. FLEXERIL (CYCLOBENZAPRINE HYDROCHLORIDE) [Concomitant]
  11. KLOR-CON (POTASSIUM CHLORIDE) [Concomitant]
  12. LASIX (FUROSEMIDE SODIUM) [Concomitant]
  13. MULTIVITAMIN (VITAMINS NOS) [Concomitant]
  14. NORCO (HYDROCODONE BITARTRATE, PARACETAMOL) [Concomitant]
  15. PHENYTOIN SODIUM [Concomitant]
  16. PRAVASTATIN SODIUM (PRAVASTATIN SODIUM) [Concomitant]
  17. PROMETHAZINE HYDROCHLORIDE (PROMETHAZINE HYDROCHLORIDE) [Concomitant]
  18. DOCUSATE CALCIUM (DOCUSATE CALCIUM) [Concomitant]
  19. WARFARIN SODIUM (WARFARIN SODIUM) [Concomitant]
  20. DIPHENHYDRAMINE HYDROCHLORIDE (DIPHENHYDRAMINE HYDROCHLORIDE) [Concomitant]
  21. DEXAMETHASONE (DEXAMETHASONE SODIUM PHOSPHATE) [Concomitant]
  22. ALOXI (PALONOSETRON HYDROCHLORIDE) [Concomitant]
  23. ZANTAC (RANITIDINE HYDROCHLORIDE) [Concomitant]
  24. PACLITAXEL (PACLITAXEL) [Concomitant]
  25. ALBUTEROL (SALBUTAMOL SULFATE) [Concomitant]
  26. IPRATROPIUM BR (IPRATROPIUM BROMIDE) [Concomitant]
  27. POTASSIUM (POTASSIUM GLUCONATE) [Concomitant]

REACTIONS (12)
  - Aggression [None]
  - Oxygen saturation decreased [None]
  - Unresponsive to stimuli [None]
  - Pulse absent [None]
  - Blood pressure immeasurable [None]
  - Anaphylactic reaction [None]
  - Cardiac arrest [None]
  - Convulsion [None]
  - Abdominal discomfort [None]
  - Flushing [None]
  - Agitation [None]
  - Urinary incontinence [None]
